FAERS Safety Report 6739709-3 (Version None)
Quarter: 2010Q2

REPORT INFORMATION
  Report Type: 
  Country: None (occurrence: None)
  Receive Date: 20100525
  Receipt Date: 20100518
  Transmission Date: 20101027
  Serious: Yes (Hospitalization)
  Sender: FDA-Public Use
  Company Number: FR-ROCHE-704195

PATIENT
  Sex: Male

DRUGS (4)
  1. ROACTEMRA [Suspect]
     Indication: RHEUMATOID ARTHRITIS
     Dosage: RECEIVED 4 CYCLES
     Route: 042
     Dates: start: 20100113, end: 20100401
  2. MABTHERA [Suspect]
     Indication: RHEUMATOID ARTHRITIS
     Dosage: RECEIVED 1 CYCLE
     Route: 042
     Dates: start: 20090901, end: 20090901
  3. METHOTREXATE [Suspect]
     Indication: RHEUMATOID ARTHRITIS
     Route: 065
  4. ZELITREX [Suspect]
     Indication: ANTIVIRAL PROPHYLAXIS
     Route: 065

REACTIONS (2)
  - CARDIAC TAMPONADE [None]
  - NEUTROPENIA [None]
